FAERS Safety Report 21634300 (Version 1)
Quarter: 2022Q4

REPORT INFORMATION
  Report Type: Spontaneous
  Country: RU (occurrence: RU)
  Receive Date: 20221123
  Receipt Date: 20221123
  Transmission Date: 20230113
  Serious: Yes (Hospitalization, Other)
  Sender: FDA-Public Use
  Company Number: RU-ViiV Healthcare Limited-RU2022GSK164326

PATIENT

DRUGS (14)
  1. LAMIVUDINE [Suspect]
     Active Substance: LAMIVUDINE
     Indication: HIV infection
     Dosage: 150 MG, BID, 1 PILL
  2. LAMIVUDINE [Suspect]
     Active Substance: LAMIVUDINE
     Indication: Acquired immunodeficiency syndrome
  3. ABACAVIR [Suspect]
     Active Substance: ABACAVIR
     Indication: HIV infection
     Dosage: 600 MG, 1D 1 PILL
  4. ABACAVIR [Suspect]
     Active Substance: ABACAVIR
     Indication: Acquired immunodeficiency syndrome
  5. ZIDOVUDINE [Suspect]
     Active Substance: ZIDOVUDINE
     Indication: HIV infection
     Dosage: UNK
  6. ZIDOVUDINE [Suspect]
     Active Substance: ZIDOVUDINE
     Indication: Acquired immunodeficiency syndrome
  7. RALTEGRAVIR [Suspect]
     Active Substance: RALTEGRAVIR
     Indication: HIV infection
     Dosage: 400 MG, BID, 1 PILL
  8. RALTEGRAVIR [Suspect]
     Active Substance: RALTEGRAVIR
     Indication: Acquired immunodeficiency syndrome
  9. DARUNAVIR [Suspect]
     Active Substance: DARUNAVIR
     Indication: HIV infection
     Dosage: UNK
  10. DARUNAVIR [Suspect]
     Active Substance: DARUNAVIR
     Indication: Acquired immunodeficiency syndrome
  11. EFAVIRENZ [Suspect]
     Active Substance: EFAVIRENZ
     Indication: HIV infection
     Dosage: UNK
  12. EFAVIRENZ [Suspect]
     Active Substance: EFAVIRENZ
     Indication: Acquired immunodeficiency syndrome
  13. RITONAVIR [Suspect]
     Active Substance: RITONAVIR
     Indication: HIV infection
     Dosage: UNK
  14. RITONAVIR [Suspect]
     Active Substance: RITONAVIR
     Indication: Acquired immunodeficiency syndrome

REACTIONS (16)
  - Hypopituitarism [Unknown]
  - Asthenia [Recovering/Resolving]
  - Fatigue [Recovering/Resolving]
  - Performance status decreased [Recovering/Resolving]
  - Weight decreased [Recovering/Resolving]
  - Libido decreased [Recovering/Resolving]
  - Condition aggravated [Recovering/Resolving]
  - Erectile dysfunction [Recovering/Resolving]
  - Hypotrichosis [Unknown]
  - Androgen deficiency [Recovered/Resolved]
  - Secondary adrenocortical insufficiency [Unknown]
  - Growth hormone deficiency [Unknown]
  - Central hypothyroidism [Unknown]
  - Secondary hypogonadism [Unknown]
  - Empty sella syndrome [Unknown]
  - Osteopenia [Unknown]

NARRATIVE: CASE EVENT DATE: 20190101
